FAERS Safety Report 25204200 (Version 3)
Quarter: 2025Q3

REPORT INFORMATION
  Report Type: Report from Study
  Country: CO (occurrence: CO)
  Receive Date: 20250416
  Receipt Date: 20250709
  Transmission Date: 20251021
  Serious: Yes (Death, Hospitalization)
  Sender: NOVARTIS
  Company Number: CO-002147023-NVSC2025CO017280

PATIENT
  Sex: Female
  Weight: 74 kg

DRUGS (4)
  1. KISQALI [Suspect]
     Active Substance: RIBOCICLIB SUCCINATE
     Indication: Breast cancer metastatic
     Dosage: 600 MG, QD
     Route: 048
     Dates: start: 20250128
  2. KISQALI [Suspect]
     Active Substance: RIBOCICLIB SUCCINATE
     Indication: Hormone receptor positive HER2 negative breast cancer
  3. LETROZOLE [Concomitant]
     Active Substance: LETROZOLE
     Indication: Product used for unknown indication
     Route: 065
  4. CALCIUM [Concomitant]
     Active Substance: CALCIUM
     Indication: Bone disorder
     Route: 065

REACTIONS (10)
  - Death [Fatal]
  - Headache [Recovering/Resolving]
  - Illness [Unknown]
  - Arthralgia [Unknown]
  - Vomiting [Unknown]
  - Apathy [Unknown]
  - Weight decreased [Unknown]
  - Influenza [Recovered/Resolved]
  - Cough [Recovering/Resolving]
  - Product supply issue [Unknown]
